FAERS Safety Report 8326954-9 (Version None)
Quarter: 2012Q2

REPORT INFORMATION
  Report Type: 
  Country: None (occurrence: None)
  Receive Date: 20120501
  Receipt Date: 20120423
  Transmission Date: 20120825
  Serious: Yes (Disabling)
  Sender: FDA-Public Use
  Company Number: DE-GILEAD-2012-0054394

PATIENT
  Age: 79 Year
  Sex: Male

DRUGS (1)
  1. RANOLAZINE [Suspect]
     Indication: ANGINA PECTORIS
     Dosage: 375 MG, BID
     Route: 048
     Dates: start: 20110401, end: 20111001

REACTIONS (2)
  - JOINT DESTRUCTION [None]
  - GOUT [None]
